FAERS Safety Report 17241210 (Version 1)
Quarter: 2020Q1

REPORT INFORMATION
  Report Type: Spontaneous
  Country: US (occurrence: US)
  Receive Date: 20200106
  Receipt Date: 20200106
  Transmission Date: 20200409
  Serious: Yes (Hospitalization)
  Sender: FDA-Public Use
  Company Number: None

PATIENT
  Sex: Female

DRUGS (13)
  1. ERLOTINIB [Suspect]
     Active Substance: ERLOTINIB
     Indication: PANCREATIC CARCINOMA
     Route: 048
     Dates: start: 20191212
  2. FAMOTIDINE. [Concomitant]
     Active Substance: FAMOTIDINE
  3. PROMETHAZINE [Concomitant]
     Active Substance: PROMETHAZINE HYDROCHLORIDE
  4. COLACE [Concomitant]
     Active Substance: DOCUSATE SODIUM
  5. URSODIOL. [Concomitant]
     Active Substance: URSODIOL
  6. OXYCONTIN [Concomitant]
     Active Substance: OXYCODONE HYDROCHLORIDE
  7. OXYCODONE [Concomitant]
     Active Substance: OXYCODONE
  8. CREON [Concomitant]
     Active Substance: PANCRELIPASE AMYLASE\PANCRELIPASE LIPASE\PANCRELIPASE PROTEASE
  9. VITAMIN B-6 [Concomitant]
     Active Substance: PYRIDOXINE
  10. ELIQUIS [Concomitant]
     Active Substance: APIXABAN
  11. PROBIOTIC [Concomitant]
     Active Substance: PROBIOTICS NOS
  12. ONDANSETRON [Concomitant]
     Active Substance: ONDANSETRON
  13. DULOXETINE. [Concomitant]
     Active Substance: DULOXETINE

REACTIONS (2)
  - Pain management [None]
  - Therapy cessation [None]
